FAERS Safety Report 7907040-6 (Version None)
Quarter: 2011Q4

REPORT INFORMATION
  Report Type: 
  Country: None (occurrence: None)
  Receive Date: 20111110
  Receipt Date: 20111108
  Transmission Date: 20120403
  Serious: Yes (Hospitalization, Other)
  Sender: FDA-Public Use
  Company Number: BR-ABBOTT-11P-020-0870990-00

PATIENT
  Sex: Female
  Weight: 75 kg

DRUGS (12)
  1. HYZAAR [Concomitant]
     Indication: HYPERTENSION
     Dosage: 50/12.5MG QD
  2. OMEPRAZOLE [Concomitant]
     Indication: GASTRIC DISORDER
  3. HUMIRA [Suspect]
     Indication: RHEUMATOID ARTHRITIS
     Dates: start: 20110601
  4. LOSARTAN POTASSIUM [Concomitant]
     Indication: HYPERTENSION
     Route: 048
  5. SERENATA [Concomitant]
     Indication: DEPRESSION
     Route: 048
  6. NEUTROFER [Concomitant]
     Indication: ANAEMIA
  7. OMEPRAZOLE [Concomitant]
     Indication: PROPHYLAXIS
  8. ZETRON [Concomitant]
     Indication: DEPRESSION
     Route: 048
  9. SIMVASTATIN [Concomitant]
     Indication: BLOOD CHOLESTEROL
     Route: 048
  10. HUMIRA [Suspect]
  11. METFORMIN HCL [Concomitant]
     Indication: DIABETES MELLITUS
     Route: 048
  12. SYNTHROID [Concomitant]
     Indication: THYROID DISORDER
     Route: 048

REACTIONS (15)
  - DRUG HYPERSENSITIVITY [None]
  - COUGH [None]
  - ANAEMIA [None]
  - DIZZINESS [None]
  - SUTURE RELATED COMPLICATION [None]
  - LOCALISED INFECTION [None]
  - WOUND DEHISCENCE [None]
  - VOMITING [None]
  - THIRST [None]
  - NAUSEA [None]
  - POSTOPERATIVE WOUND INFECTION [None]
  - PAROTID GLAND INFLAMMATION [None]
  - KNEE ARTHROPLASTY [None]
  - PAIN IN EXTREMITY [None]
  - ORAL DISORDER [None]
